FAERS Safety Report 5906685-2 (Version None)
Quarter: 2008Q3

REPORT INFORMATION
  Report Type: 
  Country: None (occurrence: None)
  Receive Date: 20080930
  Receipt Date: 20080918
  Transmission Date: 20090109
  Serious: No
  Sender: FDA-Public Use
  Company Number: 2008-183924-NL

PATIENT
  Age: 59 Year
  Sex: Male

DRUGS (2)
  1. DEXAMETHASONE [Suspect]
     Indication: BRAIN OEDEMA
     Dosage: 24 MG, ORAL
     Route: 048
     Dates: start: 20080701
  2. PHENYTOIN [Suspect]
     Indication: CONVULSION
     Dosage: 100 MG TID , ORAL
     Route: 048
     Dates: start: 20080301, end: 20080817

REACTIONS (7)
  - ANTICONVULSANT DRUG LEVEL INCREASED [None]
  - ATAXIA [None]
  - BRAIN NEOPLASM [None]
  - BRAIN OEDEMA [None]
  - CONFUSIONAL STATE [None]
  - DRUG INTERACTION [None]
  - TREMOR [None]
